FAERS Safety Report 6356354-2 (Version None)
Quarter: 2009Q3

REPORT INFORMATION
  Report Type: 
  Country: None (occurrence: None)
  Receive Date: 20090911
  Receipt Date: 20090911
  Transmission Date: 20100115
  Serious: Yes (Life-Threatening, Hospitalization)
  Sender: FDA-Public Use
  Company Number: None

PATIENT
  Age: 85 Year
  Sex: Male
  Weight: 86 kg

DRUGS (1)
  1. ZYVOX [Suspect]
     Indication: ENDOCARDITIS STAPHYLOCOCCAL
     Dosage: 600MG TWICE DAILY PO
     Route: 048
     Dates: start: 20090718, end: 20090818

REACTIONS (2)
  - LACTIC ACIDOSIS [None]
  - THROMBOCYTOPENIA [None]
